FAERS Safety Report 7277233-2 (Version None)
Quarter: 2010Q4

REPORT INFORMATION
  Report Type: 
  Country: None (occurrence: None)
  Receive Date: 20101201
  Receipt Date: 20091006
  Transmission Date: 20110411
  Serious: Yes (Other)
  Sender: FDA-Public Use
  Company Number: 292500

PATIENT
  Age: 30 Year
  Sex: Female
  Weight: 113.4 kg

DRUGS (6)
  1. NOVOLOG MIX 70/30 [Suspect]
     Indication: TYPE 2 DIABETES MELLITUS
     Dosage: 40 IU, TID, SUBCUTANEOUS
     Route: 058
     Dates: start: 20070101
  2. AVANDIA [Concomitant]
  3. GLUCOPHAGE /00082701/ (METFORMIN) [Concomitant]
  4. ENALAPRIL MALEATE [Concomitant]
  5. LAMICTAL [Concomitant]
  6. ABILIFY [Concomitant]

REACTIONS (3)
  - BLOOD GLUCOSE INCREASED [None]
  - DEVICE MALFUNCTION [None]
  - HYPERSOMNIA [None]
